FAERS Safety Report 18352050 (Version 1)
Quarter: 2020Q4

REPORT INFORMATION
  Report Type: Report from Study
  Country: GB (occurrence: GB)
  Receive Date: 20201006
  Receipt Date: 20201006
  Transmission Date: 20210114
  Serious: Yes (Other)
  Sender: FDA-Public Use
  Company Number: GB-JNJFOC-20200946155

PATIENT
  Age: 5 Decade
  Sex: Female

DRUGS (5)
  1. STELARA [Suspect]
     Active Substance: USTEKINUMAB
  2. LEVOTHYROXINE. [Concomitant]
     Active Substance: LEVOTHYROXINE
  3. SERTRALINE [Concomitant]
     Active Substance: SERTRALINE HYDROCHLORIDE
  4. AMITRIPTYLINE [Concomitant]
     Active Substance: AMITRIPTYLINE
  5. STELARA [Suspect]
     Active Substance: USTEKINUMAB
     Indication: PSORIASIS
     Route: 058
     Dates: start: 2018

REACTIONS (3)
  - Pneumonia [Unknown]
  - Inappropriate schedule of product administration [Unknown]
  - Psoriasis [Unknown]

NARRATIVE: CASE EVENT DATE: 2019
